FAERS Safety Report 16383147 (Version 1)
Quarter: 2019Q2

REPORT INFORMATION
  Report Type: Spontaneous
  Country: HU (occurrence: HU)
  Receive Date: 20190603
  Receipt Date: 20190603
  Transmission Date: 20190711
  Serious: Yes (Hospitalization, Other)
  Sender: FDA-Public Use
  Company Number: PHHY2019HU125095

PATIENT
  Age: 63 Year

DRUGS (3)
  1. OPDIVO [Concomitant]
     Active Substance: NIVOLUMAB
     Indication: PRODUCT USED FOR UNKNOWN INDICATION
     Dosage: UNK
     Route: 065
     Dates: start: 201702
  2. OPDIVO [Concomitant]
     Active Substance: NIVOLUMAB
     Dosage: UNK
     Route: 065
     Dates: start: 201707
  3. VOTRIENT [Suspect]
     Active Substance: PAZOPANIB HYDROCHLORIDE
     Indication: RENAL CELL CARCINOMA
     Dosage: UNK
     Route: 065
     Dates: start: 201403

REACTIONS (7)
  - Metastases to lung [Unknown]
  - Metastases to gallbladder [Unknown]
  - Malignant neoplasm progression [Unknown]
  - Diabetes mellitus [Unknown]
  - Pneumonia [Unknown]
  - Dyspnoea [Unknown]
  - Post procedural complication [Unknown]

NARRATIVE: CASE EVENT DATE: 201612
